FAERS Safety Report 17653847 (Version 1)
Quarter: 2020Q2

REPORT INFORMATION
  Report Type: Spontaneous
  Country: AU (occurrence: AU)
  Receive Date: 20200410
  Receipt Date: 20200410
  Transmission Date: 20200713
  Serious: Yes (Hospitalization, Other)
  Sender: FDA-Public Use
  Company Number: AU-MACLEODS PHARMACEUTICALS US LTD-MAC2020026055

PATIENT

DRUGS (2)
  1. CLOPIDOGREL [Suspect]
     Active Substance: CLOPIDOGREL BISULFATE
     Indication: TRANSIENT ISCHAEMIC ATTACK
     Dosage: 75 MILLIGRAM, QD
     Route: 065
  2. ACETYLSALICYLIC ACID [Concomitant]
     Active Substance: ASPIRIN
     Indication: TRANSIENT ISCHAEMIC ATTACK
     Dosage: 100 MILLIGRAM, QD
     Route: 065

REACTIONS (6)
  - Drug resistance [Unknown]
  - Hiccups [Recovered/Resolved]
  - Cerebral infarction [Recovered/Resolved]
  - Vascular stent thrombosis [Recovered/Resolved]
  - Embolic stroke [Recovered/Resolved]
  - Therapeutic response decreased [Unknown]
